FAERS Safety Report 7855644 (Version 2)
Quarter: 2012Q4

REPORT INFORMATION
  Report Type: 
  Country: US (occurrence: US)
  Receive Date: 20110315
  Receipt Date: 20121224
  Transmission Date: 20130627
  Serious: Yes (Hospitalization, Other)
  Sender: FDA-Public Use
  Company Number: US-ELI_LILLY_AND_COMPANY-US201103003339

PATIENT
  Sex: Female

DRUGS (6)
  1. BYETTA [Suspect]
     Indication: DIABETES MELLITUS
     Dosage: UNK
     Dates: start: 200904, end: 200907
  2. METFORMIN [Concomitant]
  3. ALBUTEROL [Concomitant]
  4. LISINOPRIL AND HYDROCHLOROTHIAZIDE [Concomitant]
  5. CELEXA [Concomitant]
  6. ZANTAC [Concomitant]
     Dosage: UNK, bid

REACTIONS (3)
  - Pancreatitis acute [Recovering/Resolving]
  - Pancreatic pseudocyst [Recovering/Resolving]
  - Weight decreased [Unknown]
